FAERS Safety Report 19992727 (Version 2)
Quarter: 2022Q2

REPORT INFORMATION
  Report Type: Report from Study
  Country: NL (occurrence: NL)
  Receive Date: 20211026
  Receipt Date: 20220513
  Transmission Date: 20220721
  Serious: Yes (Other)
  Sender: FDA-Public Use
  Company Number: NL-ABBVIE-21K-114-3984288-00

PATIENT
  Age: 72 Year
  Sex: Male

DRUGS (3)
  1. CARBIDOPA\LEVODOPA [Suspect]
     Active Substance: CARBIDOPA\LEVODOPA
     Indication: Parkinson^s disease
     Dosage: MD: 6 ML, CD: 1.4 ML/H, ED: 1 ML
     Route: 050
     Dates: start: 20210628, end: 2021
  2. CARBIDOPA\LEVODOPA [Suspect]
     Active Substance: CARBIDOPA\LEVODOPA
     Dosage: MD: 8 ML, CD: 1.7 ML/H, ED: 2 ML
     Route: 050
     Dates: start: 2021, end: 2021
  3. CARBIDOPA\LEVODOPA [Suspect]
     Active Substance: CARBIDOPA\LEVODOPA
     Dosage: MD: 11.0 ML, CD: 1.7 ML/H, ED: 2.0 ML
     Route: 050

REACTIONS (15)
  - Brain neoplasm [Not Recovered/Not Resolved]
  - Muscle strain [Unknown]
  - Cognitive disorder [Recovering/Resolving]
  - Bowel movement irregularity [Not Recovered/Not Resolved]
  - Tension [Not Recovered/Not Resolved]
  - Memory impairment [Not Recovered/Not Resolved]
  - Impaired quality of life [Unknown]
  - Tremor [Not Recovered/Not Resolved]
  - Abnormal dreams [Recovered/Resolved]
  - Hallucination, visual [Recovered/Resolved]
  - Constipation [Not Recovered/Not Resolved]
  - On and off phenomenon [Not Recovered/Not Resolved]
  - Drug ineffective [Unknown]
  - Dyskinesia [Recovered/Resolved]
  - Stoma site erythema [Not Recovered/Not Resolved]

NARRATIVE: CASE EVENT DATE: 20210101
